FAERS Safety Report 4956399-0 (Version None)
Quarter: 2006Q1

REPORT INFORMATION
  Report Type: 
  Country: None (occurrence: None)
  Receive Date: 20060328
  Receipt Date: 20060328
  Transmission Date: 20060701
  Serious: Yes (Death)
  Sender: FDA-Public Use
  Company Number: None

PATIENT
  Age: 78 Year
  Sex: Male
  Weight: 68 kg

DRUGS (2)
  1. HEPARIN [Suspect]
     Indication: DIALYSIS
     Dosage: 45, 000 UNITS ONE TIME IV BOLUS
     Route: 040
     Dates: start: 20051116, end: 20051116
  2. HEPARIN [Suspect]
     Indication: INDWELLING CATHETER MANAGEMENT
     Dosage: 45, 000 UNITS ONE TIME IV BOLUS
     Route: 040
     Dates: start: 20051116, end: 20051116

REACTIONS (1)
  - MEDICATION ERROR [None]
